FAERS Safety Report 7571653-4 (Version None)
Quarter: 2011Q2

REPORT INFORMATION
  Report Type: 
  Country: None (occurrence: None)
  Receive Date: 20110616
  Receipt Date: 20100622
  Transmission Date: 20111010
  Serious: Yes (Other)
  Sender: FDA-Public Use
  Company Number: 2010024852

PATIENT
  Age: 38 Year
  Sex: Female
  Weight: 109.3 kg

DRUGS (36)
  1. HIZENTRA [Suspect]
  2. NORCO [Concomitant]
  3. HIZENTRA [Suspect]
     Indication: IMMUNODEFICIENCY COMMON VARIABLE
     Dosage: SEE IMAGE
     Route: 058
     Dates: start: 20110603
  4. HIZENTRA [Suspect]
     Indication: IMMUNODEFICIENCY COMMON VARIABLE
     Dosage: SEE IMAGE
     Route: 058
     Dates: start: 20110425
  5. HIZENTRA [Suspect]
     Indication: IMMUNODEFICIENCY COMMON VARIABLE
     Dosage: SEE IMAGE
     Route: 058
     Dates: start: 20110425
  6. HIZENTRA [Suspect]
     Indication: IMMUNODEFICIENCY COMMON VARIABLE
     Dosage: SEE IMAGE
     Route: 058
     Dates: start: 20100526
  7. HIZENTRA [Suspect]
     Indication: IMMUNODEFICIENCY COMMON VARIABLE
     Dosage: SEE IMAGE
     Route: 058
     Dates: start: 20110425
  8. HIZENTRA [Suspect]
     Indication: IMMUNODEFICIENCY COMMON VARIABLE
     Dosage: SEE IMAGE
     Route: 058
     Dates: start: 20110603
  9. HIZENTRA [Suspect]
     Indication: IMMUNODEFICIENCY COMMON VARIABLE
     Dosage: SEE IMAGE
     Route: 058
     Dates: start: 20110603
  10. HIZENTRA [Suspect]
  11. LASIX [Concomitant]
  12. DUONEB [Concomitant]
  13. ATIVAN [Concomitant]
  14. HIZENTRA [Suspect]
  15. HIZENTRA [Suspect]
  16. RISPERDAL [Concomitant]
  17. LUVOX [Concomitant]
  18. PULMICORT [Concomitant]
  19. HIZENTRA [Suspect]
  20. HIZENTRA [Suspect]
  21. CHOLESTYRAMINE (COLESTYRAMINE) [Concomitant]
  22. CARDIZEM [Concomitant]
  23. METFORM HCL (METFORMIN HYDROCHLORIDE) [Concomitant]
  24. TOPAMAX [Concomitant]
  25. HIZENTRA [Suspect]
  26. EFFEXOR XR [Concomitant]
  27. GLYBURIDE [Concomitant]
  28. OXYCODONE-APAP (OXYCODONE/APAP) [Concomitant]
  29. HIZENTRA [Suspect]
  30. ALLEGRA [Concomitant]
  31. ASPIRIN [Concomitant]
  32. PREVACID [Concomitant]
  33. ERYTHROMYCIN [Concomitant]
  34. SEROQUEL (QUETIAPINE) [Concomitant]
  35. PHENERGAN [Concomitant]
  36. METHOCARBAMOL [Concomitant]

REACTIONS (10)
  - MIGRAINE [None]
  - VOMITING [None]
  - INFUSION SITE WARMTH [None]
  - UPPER RESPIRATORY TRACT INFECTION [None]
  - PROTEUS INFECTION [None]
  - PSEUDOMONAS INFECTION [None]
  - INFUSION SITE ERYTHEMA [None]
  - INFUSION SITE SWELLING [None]
  - MENINGITIS ASEPTIC [None]
  - INFUSION SITE PAIN [None]
